FAERS Safety Report 13584472 (Version 1)
Quarter: 2017Q2

REPORT INFORMATION
  Report Type: Spontaneous
  Country: BR (occurrence: BR)
  Receive Date: 20170526
  Receipt Date: 20170526
  Transmission Date: 20170830
  Serious: Yes (Hospitalization)
  Sender: FDA-Public Use
  Company Number: BR-009507513-1705BRA011804

PATIENT
  Sex: Female
  Weight: 84 kg

DRUGS (1)
  1. NASONEX [Suspect]
     Active Substance: MOMETASONE FUROATE
     Indication: RHINITIS
     Dosage: 2 JETS IN EACH NOSTRIL, ONCE DAILY
     Route: 045
     Dates: start: 1992

REACTIONS (4)
  - Food allergy [Not Recovered/Not Resolved]
  - Nasal discomfort [Not Recovered/Not Resolved]
  - Maternal exposure before pregnancy [Recovered/Resolved]
  - Joint dislocation [Unknown]

NARRATIVE: CASE EVENT DATE: 1992
